FAERS Safety Report 6731971-6 (Version None)
Quarter: 2010Q2

REPORT INFORMATION
  Report Type: 
  Country: None (occurrence: None)
  Receive Date: 20100519
  Receipt Date: 20100505
  Transmission Date: 20101027
  Serious: Yes (Hospitalization, Other)
  Sender: FDA-Public Use
  Company Number: PHHY2010DE29449

PATIENT
  Sex: Male
  Weight: 96 kg

DRUGS (8)
  1. ALISKIREN ALI+ [Suspect]
     Indication: HYPERTENSION
     Dosage: UNK
     Dates: start: 20090206
  2. METOPROLOL TARTRATE [Suspect]
     Dosage: 150 MG PER DAY
     Route: 048
     Dates: start: 20080101
  3. CALCIUM CHANNEL BLOCKERS [Concomitant]
     Dosage: UNK
     Dates: start: 20080101
  4. DIURETICS [Concomitant]
     Dosage: UNK
     Dates: start: 20080101
  5. RAMIPRIL [Concomitant]
     Dosage: 10 MG PER DAY
     Route: 048
     Dates: start: 20080101
  6. ASPIRIN [Concomitant]
     Dosage: 100 MG PER DAY
     Route: 048
     Dates: start: 20080101
  7. AMLODIPINE [Concomitant]
     Dosage: 10 MG, QD
     Route: 048
     Dates: start: 20080101
  8. SIMVASTATIN [Concomitant]
     Dosage: 40 MG PER DAY
     Route: 048
     Dates: start: 20080101

REACTIONS (13)
  - ANGINA PECTORIS [None]
  - BLOOD PRESSURE INCREASED [None]
  - CARDIAC FAILURE [None]
  - CARDIAC REHABILITATION THERAPY [None]
  - CORONARY ARTERY BYPASS [None]
  - CORONARY ARTERY DISEASE [None]
  - DYSPNOEA EXERTIONAL [None]
  - ELECTROCARDIOGRAM QRS COMPLEX PROLONGED [None]
  - ELECTROCARDIOGRAM QT PROLONGED [None]
  - HYPERLIPIDAEMIA [None]
  - LEFT VENTRICULAR HYPERTROPHY [None]
  - LOW DENSITY LIPOPROTEIN INCREASED [None]
  - PERIPHERAL ARTERIAL OCCLUSIVE DISEASE [None]
